FAERS Safety Report 4523297-6 (Version None)
Quarter: 2004Q4

REPORT INFORMATION
  Report Type: 
  Country: None (occurrence: None)
  Receive Date: 20041202
  Receipt Date: 20041118
  Transmission Date: 20050328
  Serious: Yes (Other)
  Sender: FDA-Public Use
  Company Number: 200410862BCA

PATIENT
  Age: 77 Year
  Sex: Female

DRUGS (1)
  1. GAMUNEX [Suspect]
     Dosage: 20 G, QD, INTRAVENOUS
     Route: 042
     Dates: start: 20040705

REACTIONS (4)
  - BRONCHOSPASM [None]
  - DYSPNOEA [None]
  - HYPERSENSITIVITY [None]
  - HYPERTENSION [None]
